FAERS Safety Report 8966192 (Version 2)
Quarter: 2013Q1

REPORT INFORMATION
  Report Type: Report from Study
  Country: JP (occurrence: JP)
  Receive Date: 20121214
  Receipt Date: 20130315
  Transmission Date: 20140127
  Serious: Yes (Death, Hospitalization, Other)
  Sender: FDA-Public Use
  Company Number: JP-GENZYME-THYM-1003520

PATIENT
  Age: 13 Year
  Sex: Male
  Weight: 52 kg

DRUGS (20)
  1. THYMOGLOBULIN [Suspect]
     Indication: BONE MARROW CONDITIONING REGIMEN
     Dosage: UNK
     Route: 065
  2. PREDNISOLONE [Suspect]
     Indication: ACUTE LYMPHOCYTIC LEUKAEMIA
     Dosage: UNK
     Route: 065
     Dates: start: 20120319, end: 20120401
  3. MELPHALAN [Concomitant]
     Indication: ACUTE LYMPHOCYTIC LEUKAEMIA RECURRENT
     Dosage: UNK
     Route: 065
     Dates: start: 20120319, end: 20120320
  4. TACROLIMUS [Concomitant]
     Indication: PROPHYLAXIS AGAINST GRAFT VERSUS HOST DISEASE
     Dosage: UNK
     Route: 065
     Dates: start: 20120320, end: 20120401
  5. METHOTREXATE [Concomitant]
     Indication: ACUTE LYMPHOCYTIC LEUKAEMIA RECURRENT
     Dosage: UNK
     Route: 065
     Dates: start: 20120322, end: 20120327
  6. URSODEOXYCHOLIC ACID [Concomitant]
     Indication: PROPHYLAXIS
     Dosage: UNK
     Route: 065
     Dates: start: 20120319, end: 20120401
  7. DALTEPARIN SODIUM [Concomitant]
     Indication: PROPHYLAXIS
     Dosage: UNK
     Route: 065
     Dates: start: 20120319, end: 20120401
  8. PLASMA [Concomitant]
     Indication: PROPHYLAXIS
     Dosage: UNK
     Route: 065
     Dates: start: 20120321, end: 20120331
  9. CALCIUM FOLINATE [Concomitant]
     Indication: DRUG TOXICITY PROPHYLAXIS
     Dosage: UNK
     Route: 065
     Dates: start: 20120323, end: 20120328
  10. CEFMETAZOLE SODIUM [Concomitant]
     Indication: PROPHYLAXIS
     Dosage: UNK
     Route: 065
     Dates: start: 20120322, end: 20120401
  11. ACICLOVIR [Concomitant]
     Indication: ANTIVIRAL PROPHYLAXIS
     Dosage: UNK
     Route: 065
     Dates: start: 20120326, end: 20120401
  12. MICAFUNGIN SODIUM [Concomitant]
     Indication: PROPHYLAXIS
     Dosage: UNK
     Route: 065
     Dates: start: 2012, end: 20120401
  13. FILGRASTIM [Concomitant]
     Indication: ACUTE LYMPHOCYTIC LEUKAEMIA RECURRENT
     Dosage: UNK
     Route: 065
     Dates: start: 20120326, end: 20120401
  14. GRANISETRON HYDROCHLORIDE [Concomitant]
     Indication: PROPHYLAXIS OF NAUSEA AND VOMITING
     Dosage: UNK
     Route: 065
     Dates: start: 20120319, end: 20120321
  15. FUROSEMIDE [Concomitant]
     Indication: URINE OUTPUT DECREASED
     Dosage: UNK
     Route: 065
     Dates: start: 20120319, end: 20120327
  16. MIXED AMINO ACID CARBOHYDRATE ELECTROLYTE COMBINED DRUG [Concomitant]
     Indication: PROPHYLAXIS
     Dosage: UNK
     Route: 065
     Dates: start: 20120328, end: 20120401
  17. METHYLPREDNISOLONE SODIUM SUCCINATE [Concomitant]
     Indication: PREMEDICATION
     Dosage: UNK
     Route: 065
     Dates: start: 20120319, end: 20120320
  18. PENTAZOCINE HYDROCHLORIDE [Concomitant]
     Indication: PAIN
     Dosage: UNK
     Route: 065
     Dates: start: 20120328, end: 20120328
  19. CONCENTRATED HUMAN BLOOD PLATELET [Concomitant]
     Indication: PLATELET COUNT DECREASED
     Dosage: UNK
     Route: 065
     Dates: start: 20120319, end: 20120330
  20. CONCENTRATED HUMAN RED BLOOD CELLS [Concomitant]
     Indication: ANAEMIA
     Dosage: UNK
     Route: 065
     Dates: start: 20120320, end: 20120330

REACTIONS (10)
  - Pneumonia bacterial [Fatal]
  - Bacterial infection [Fatal]
  - Sepsis [Unknown]
  - Pulmonary haemorrhage [Fatal]
  - Hyperglycaemia [Fatal]
  - Abdominal distension [Fatal]
  - Hypoalbuminaemia [Recovered/Resolved]
  - Hypertension [Fatal]
  - Pruritus [Fatal]
  - Myelitis [Fatal]
